FAERS Safety Report 22646198 (Version 1)
Quarter: 2023Q2

REPORT INFORMATION
  Report Type: Report from Study
  Country: CA (occurrence: CA)
  Receive Date: 20230627
  Receipt Date: 20230627
  Transmission Date: 20230722
  Serious: Yes (Other)
  Sender: FDA-Public Use
  Company Number: CA-SAMSUNG BIOEPIS-SB-2023-16825

PATIENT
  Age: 32 Year

DRUGS (2)
  1. RENFLEXIS [Suspect]
     Active Substance: INFLIXIMAB-ABDA
     Indication: Crohn^s disease
     Dosage: POWDER FOR SOLUTION FOR INJECTION
     Route: 042
     Dates: start: 20230619
  2. RENFLEXIS [Suspect]
     Active Substance: INFLIXIMAB-ABDA
     Dosage: UNKNOWN
     Route: 065

REACTIONS (6)
  - Chest discomfort [Recovering/Resolving]
  - Dyspnoea [Recovering/Resolving]
  - Hyperhidrosis [Recovering/Resolving]
  - Glassy eyes [Recovering/Resolving]
  - Flushing [Recovering/Resolving]
  - Product use issue [Unknown]

NARRATIVE: CASE EVENT DATE: 20230619
